FAERS Safety Report 7919314-3 (Version None)
Quarter: 2011Q4

REPORT INFORMATION
  Report Type: 
  Country: None (occurrence: None)
  Receive Date: 20111117
  Receipt Date: 20111107
  Transmission Date: 20120403
  Serious: Yes (Other)
  Sender: FDA-Public Use
  Company Number: US-JNJFOC-20110809780

PATIENT
  Sex: Female

DRUGS (8)
  1. REMICADE [Suspect]
     Indication: CROHN'S DISEASE
     Route: 042
     Dates: start: 20101001
  2. REMICADE [Suspect]
     Route: 042
     Dates: start: 20110729
  3. PREDNISONE TAB [Concomitant]
     Route: 048
  4. PENTASA [Concomitant]
     Route: 048
  5. PROBIOTIC [Concomitant]
     Route: 048
  6. CALCIUM AND VITAMIN D [Concomitant]
     Route: 065
  7. REMICADE [Suspect]
     Route: 042
     Dates: start: 20111007
  8. PROTONIX [Concomitant]
     Route: 065

REACTIONS (2)
  - GENITAL HERPES [None]
  - PAPILLOMA VIRAL INFECTION [None]
